FAERS Safety Report 7229332-9 (Version None)
Quarter: 2011Q1

REPORT INFORMATION
  Report Type: 
  Country: None (occurrence: None)
  Receive Date: 20110117
  Receipt Date: 20110114
  Transmission Date: 20110831
  Serious: Yes (Hospitalization, Other)
  Sender: FDA-Public Use
  Company Number: DE-ABBOTT-10P-062-0659093-00

PATIENT
  Sex: Female
  Weight: 68 kg

DRUGS (1)
  1. HUMIRA [Suspect]
     Indication: CROHN'S DISEASE
     Route: 058
     Dates: start: 20100319

REACTIONS (4)
  - SUBILEUS [None]
  - INTESTINAL ANASTOMOSIS COMPLICATION [None]
  - POSTOPERATIVE ILEUS [None]
  - POST PROCEDURAL INFECTION [None]
